FAERS Safety Report 8322979-8 (Version None)
Quarter: 2012Q2

REPORT INFORMATION
  Report Type: 
  Country: None (occurrence: None)
  Receive Date: 20120430
  Receipt Date: 20120419
  Transmission Date: 20120825
  Serious: Yes (Disabling, Other)
  Sender: FDA-Public Use
  Company Number: US-PFIZER INC-2012097789

PATIENT
  Sex: Male
  Weight: 109 kg

DRUGS (11)
  1. GLIPIZIDE [Concomitant]
     Dosage: 5 MG, UNK
  2. VIAGRA [Suspect]
     Dosage: 50 MG, AS NEEDED
     Route: 048
     Dates: start: 20120101
  3. LYRICA [Concomitant]
     Dosage: 150 MG, UNK
  4. METFORMIN [Concomitant]
     Indication: TYPE 2 DIABETES MELLITUS
     Dosage: 1000 MG, UNK
  5. KLONOPIN [Concomitant]
     Dosage: 1 MG, UNK
  6. LISINOPRIL AND HYDROCHLOROTHIAZIDE [Concomitant]
     Dosage: 10/5 MG, UNK
  7. MELOXICAM [Concomitant]
     Dosage: 15 MG, UNK
  8. TIZANIDINE [Concomitant]
     Dosage: 4 MG, UNK
  9. SIMVASTATIN [Concomitant]
     Dosage: 20 MG, UNK
  10. VIAGRA [Suspect]
     Indication: ERECTILE DYSFUNCTION
     Dosage: 25 MG, AS NEEDED
     Route: 048
     Dates: start: 20110401, end: 20120101
  11. TRAZODONE [Concomitant]
     Indication: PAIN
     Dosage: 50 MG, UNK

REACTIONS (3)
  - DIABETES MELLITUS [None]
  - DRUG INEFFECTIVE [None]
  - PHYSICAL DISABILITY [None]
